FAERS Safety Report 19657842 (Version 1)
Quarter: 2021Q3

REPORT INFORMATION
  Report Type: Spontaneous
  Country: US (occurrence: US)
  Receive Date: 20210804
  Receipt Date: 20210804
  Transmission Date: 20211014
  Serious: No
  Sender: FDA-Public Use
  Company Number: US-MYLANLABS-2021M1046905

PATIENT
  Sex: Male

DRUGS (1)
  1. EMTRICITABINE AND TENOFOVIR DISOPROXIL FUMARATE TABLETS [Suspect]
     Active Substance: EMTRICITABINE\TENOFOVIR DISOPROXIL FUMARATE
     Indication: SEXUALLY TRANSMITTED DISEASE
     Dosage: 200/300 MILLIGRAM QD
     Route: 048
     Dates: start: 20210724

REACTIONS (2)
  - Wrong technique in product usage process [Not Recovered/Not Resolved]
  - Product use complaint [Not Recovered/Not Resolved]

NARRATIVE: CASE EVENT DATE: 20210724
